FAERS Safety Report 22271060 (Version 1)
Quarter: 2023Q2

REPORT INFORMATION
  Report Type: Spontaneous
  Country: US (occurrence: None)
  Receive Date: 20230428
  Receipt Date: 20230428
  Transmission Date: 20230722
  Serious: No
  Sender: FDA-Public Use
  Company Number: None

PATIENT
  Sex: Male

DRUGS (1)
  1. SPRYCEL [Suspect]
     Active Substance: DASATINIB
     Indication: Chronic myeloid leukaemia
     Dosage: FREQUENCY : DAILY;?
     Route: 048

REACTIONS (11)
  - Hypersensitivity [None]
  - Nasopharyngitis [None]
  - Condition aggravated [None]
  - Skin burning sensation [None]
  - Skin disorder [None]
  - Paraesthesia [None]
  - Headache [None]
  - Fatigue [None]
  - Lethargy [None]
  - Migraine [None]
  - Ill-defined disorder [None]
